FAERS Safety Report 15591796 (Version 2)
Quarter: 2019Q4

REPORT INFORMATION
  Report Type: Report from Study
  Country: MX (occurrence: MX)
  Receive Date: 20181106
  Receipt Date: 20191024
  Transmission Date: 20200122
  Serious: Yes (Other)
  Sender: FDA-Public Use
  Company Number: MX-BAYER-2018-159728

PATIENT
  Age: 77 Year
  Sex: Male

DRUGS (3)
  1. NEXAVAR [Suspect]
     Active Substance: SORAFENIB
     Indication: HEPATOCELLULAR CARCINOMA
     Dosage: 400 MG, BID
     Dates: start: 20180615, end: 201807
  2. NEXAVAR [Suspect]
     Active Substance: SORAFENIB
     Indication: HEPATOCELLULAR CARCINOMA
     Dosage: 200 MG, BID
     Dates: start: 201808, end: 201808
  3. CAPTOPRIL. [Concomitant]
     Active Substance: CAPTOPRIL
     Indication: HYPERTENSION

REACTIONS (20)
  - Decreased appetite [Not Recovered/Not Resolved]
  - Skin ulcer [Not Recovered/Not Resolved]
  - Decreased appetite [Recovering/Resolving]
  - Blister [Recovered/Resolved]
  - Vomiting [Not Recovered/Not Resolved]
  - Alopecia [Recovered/Resolved]
  - Nausea [Recovered/Resolved]
  - Palmoplantar keratoderma [Recovered/Resolved]
  - Onychomadesis [Recovered/Resolved]
  - Abdominal pain upper [Recovered/Resolved]
  - Urticaria [Not Recovered/Not Resolved]
  - Blister [Not Recovered/Not Resolved]
  - Urinary retention [Recovering/Resolving]
  - Nausea [Unknown]
  - Hyperkeratosis [Recovered/Resolved]
  - Feeling abnormal [Not Recovered/Not Resolved]
  - Skin exfoliation [Recovering/Resolving]
  - Abdominal pain upper [Recovering/Resolving]
  - Hyperkeratosis [Recovering/Resolving]
  - Decreased appetite [Recovered/Resolved]

NARRATIVE: CASE EVENT DATE: 20180615
